FAERS Safety Report 14794227 (Version 3)
Quarter: 2019Q2

REPORT INFORMATION
  Report Type: Spontaneous
  Country: SE (occurrence: SE)
  Receive Date: 20180423
  Receipt Date: 20190612
  Transmission Date: 20190711
  Serious: Yes (Other)
  Sender: FDA-Public Use
  Company Number: SE-ROCHE-2112606

PATIENT
  Age: 35 Year
  Sex: Female

DRUGS (1)
  1. MABTHERA [Suspect]
     Active Substance: RITUXIMAB
     Indication: MULTIPLE SCLEROSIS
     Route: 065
     Dates: start: 20140915

REACTIONS (2)
  - Periodontitis [Recovering/Resolving]
  - Hypogammaglobulinaemia [Recovering/Resolving]

NARRATIVE: CASE EVENT DATE: 20171016
